FAERS Safety Report 10031531 (Version 1)
Quarter: 2014Q1

REPORT INFORMATION
  Report Type: Spontaneous
  Country: NL (occurrence: NL)
  Receive Date: 20140324
  Receipt Date: 20140324
  Transmission Date: 20141002
  Serious: Yes (Death, Hospitalization)
  Sender: FDA-Public Use
  Company Number: NL-SA-2014SA035929

PATIENT
  Age: 67 Year
  Sex: Female

DRUGS (3)
  1. RIFAMPICIN [Suspect]
     Indication: WOUND INFECTION STAPHYLOCOCCAL
     Route: 048
  2. RIVAROXABAN [Interacting]
     Indication: ANTICOAGULANT THERAPY
     Route: 065
  3. CIPROFLOXACIN [Concomitant]

REACTIONS (12)
  - Pulmonary embolism [Fatal]
  - Drug interaction [Fatal]
  - Drug level decreased [Fatal]
  - Chest pain [Fatal]
  - Dyspnoea [Fatal]
  - Tachypnoea [Fatal]
  - Hyperhidrosis [Fatal]
  - Hypotension [Fatal]
  - Tachycardia [Fatal]
  - C-reactive protein increased [Fatal]
  - Troponin T increased [Fatal]
  - Brain natriuretic peptide increased [Fatal]
